FAERS Safety Report 20437181 (Version 4)
Quarter: 2022Q3

REPORT INFORMATION
  Report Type: Spontaneous
  Country: JP (occurrence: JP)
  Receive Date: 20220207
  Receipt Date: 20220714
  Transmission Date: 20221027
  Serious: Yes (Other)
  Sender: FDA-Public Use
  Company Number: JP-GSKNCCC-Case-01410247_AE-54341

PATIENT

DRUGS (17)
  1. SOTROVIMAB [Suspect]
     Active Substance: SOTROVIMAB
     Indication: COVID-19
     Dosage: 500 MG/100 ML/30 MINUTES
     Dates: start: 20220128, end: 20220128
  2. AMBROXOL HYDROCHLORIDE [Concomitant]
     Active Substance: AMBROXOL HYDROCHLORIDE
     Indication: Atypical mycobacterial lower respiratory tract infection
     Dosage: 45 MG, QD
     Dates: start: 202009, end: 20220131
  3. AMBROXOL HYDROCHLORIDE [Concomitant]
     Active Substance: AMBROXOL HYDROCHLORIDE
     Dosage: 45 MG, QD
  4. RIFAMPIN [Concomitant]
     Active Substance: RIFAMPIN
     Indication: Atypical mycobacterial lower respiratory tract infection
     Dosage: 300 MG, QD
     Dates: start: 202009, end: 20220131
  5. RIFAMPIN [Concomitant]
     Active Substance: RIFAMPIN
     Dosage: 300 MG, QD
     Dates: start: 20220202
  6. CLARITHROMYCIN [Concomitant]
     Active Substance: CLARITHROMYCIN
     Indication: Atypical mycobacterial lower respiratory tract infection
     Dosage: 400 MG, BID
     Dates: start: 202009, end: 20220131
  7. CLARITHROMYCIN [Concomitant]
     Active Substance: CLARITHROMYCIN
     Dosage: 400 MG, BID
     Dates: start: 20220202
  8. MEMANTINE HYDROCHLORIDE [Concomitant]
     Active Substance: MEMANTINE HYDROCHLORIDE
     Dosage: NOT BROUGHT TO THE HOSPITAL ON ADMISSION ON 28 JANUARY, NOT USED THEREAFTER
     Route: 048
  9. CHLORPROMAZINE [Concomitant]
     Active Substance: CHLORPROMAZINE
     Dosage: NOT BROUGHT TO THE HOSPITAL ON ADMISSION ON 28 JANUARY, NOT USED THEREAFTER
     Route: 048
  10. RISPERIDONE [Concomitant]
     Active Substance: RISPERIDONE
     Dosage: NOT BROUGHT TO THE HOSPITAL ON ADMISSION ON 28 JANUARY, NOT USED THEREAFTER
     Route: 048
  11. SODIUM PICOSULFATE [Concomitant]
     Active Substance: SODIUM PICOSULFATE
     Dosage: NOT BROUGHT TO THE HOSPITAL ON ADMISSION ON 28 JANUARY, NOT USED THEREAFTER
     Route: 048
  12. LEVOTHYROXINE SODIUM [Concomitant]
     Active Substance: LEVOTHYROXINE SODIUM
     Dosage: NOT BROUGHT TO THE HOSPITAL ON ADMISSION ON 28 JANUARY, NOT USED THEREAFTER
     Route: 048
  13. ALFAROL CAPSULE [Concomitant]
     Dosage: NOT BROUGHT TO THE HOSPITAL ON ADMISSION ON 28 JANUARY, NOT USED THEREAFTER
     Route: 048
  14. BONALON JELLY [Concomitant]
     Dosage: NOT BROUGHT TO THE HOSPITAL ON ADMISSION ON 28 JANUARY, NOT USED THEREAFTER
     Route: 048
  15. LOXOPROFEN SODIUM DIHYDRATE [Concomitant]
     Active Substance: LOXOPROFEN SODIUM DIHYDRATE
     Dosage: NOT BROUGHT TO THE HOSPITAL ON ADMISSION ON 28 JANUARY, NOT USED THEREAFTER
  16. HIRUDOID SOFT OINTMENT [Concomitant]
     Dosage: NOT BROUGHT TO THE HOSPITAL ON ADMISSION ON 28 JANUARY, NOT USED THEREAFTER
  17. DIFLUPREDNATE [Concomitant]
     Active Substance: DIFLUPREDNATE
     Dosage: NOT BROUGHT TO THE HOSPITAL ON ADMISSION ON 28 JANUARY, NOT USED THEREAFTER

REACTIONS (2)
  - Hepatitis fulminant [Recovering/Resolving]
  - Decreased appetite [Unknown]

NARRATIVE: CASE EVENT DATE: 20220101
